FAERS Safety Report 6579197-3 (Version None)
Quarter: 2010Q1

REPORT INFORMATION
  Report Type: 
  Country: None (occurrence: None)
  Receive Date: 20100203
  Receipt Date: 20100119
  Transmission Date: 20100710
  Serious: Yes (Hospitalization)
  Sender: FDA-Public Use
  Company Number: 2010000264

PATIENT
  Age: 74 Year
  Sex: Female

DRUGS (2)
  1. TARCEVA [Suspect]
     Indication: PANCREATIC CARCINOMA
     Dosage: 100 MG, ORAL
     Route: 048
     Dates: start: 20090924, end: 20091228
  2. GEMCITABINE [Suspect]
     Indication: PANCREATIC CARCINOMA

REACTIONS (4)
  - PANCREATITIS [None]
  - PERITONITIS BACTERIAL [None]
  - PULMONARY EMBOLISM [None]
  - VENOUS THROMBOSIS LIMB [None]
